FAERS Safety Report 7002153-8 (Version None)
Quarter: 2010Q3

REPORT INFORMATION
  Report Type: 
  Country: None (occurrence: None)
  Receive Date: 20100920
  Receipt Date: 20100422
  Transmission Date: 20110219
  Serious: Yes (Hospitalization)
  Sender: FDA-Public Use
  Company Number: US-ASTRAZENECA-2010SE17963

PATIENT
  Age: 30 Year
  Sex: Male

DRUGS (4)
  1. SEROQUEL XR [Suspect]
     Indication: BIPOLAR DISORDER
     Route: 048
  2. SEROQUEL XR [Suspect]
     Dosage: UNKNOWN AMOUNT
     Route: 048
  3. PRESTIQUE [Concomitant]
  4. BENZODIAZEPAM [Concomitant]

REACTIONS (1)
  - OVERDOSE [None]
